FAERS Safety Report 14113764 (Version 1)
Quarter: 2017Q4

REPORT INFORMATION
  Report Type: Spontaneous
  Country: IT (occurrence: IT)
  Receive Date: 20171023
  Receipt Date: 20171023
  Transmission Date: 20180321
  Serious: Yes (Other)
  Sender: FDA-Public Use
  Company Number: IT-JNJFOC-20171015395

PATIENT
  Age: 48 Year
  Sex: Female

DRUGS (2)
  1. VALPROATE SODIUM. [Concomitant]
     Active Substance: VALPROATE SODIUM
     Indication: PRODUCT USED FOR UNKNOWN INDICATION
     Route: 048
  2. XEPLION [Suspect]
     Active Substance: PALIPERIDONE PALMITATE
     Indication: SCHIZOAFFECTIVE DISORDER
     Dosage: 150 MG EVERY 21 DAYS
     Route: 030
     Dates: start: 20170110, end: 20171016

REACTIONS (4)
  - Skin mass [Recovered/Resolved with Sequelae]
  - Inappropriate schedule of drug administration [Unknown]
  - Off label use [Unknown]
  - Skin discolouration [Recovered/Resolved with Sequelae]

NARRATIVE: CASE EVENT DATE: 2017
